FAERS Safety Report 6288742-7 (Version None)
Quarter: 2009Q3

REPORT INFORMATION
  Report Type: 
  Country: None (occurrence: None)
  Receive Date: 20090729
  Receipt Date: 20090624
  Transmission Date: 20100115
  Serious: Yes (Death, Other)
  Sender: FDA-Public Use
  Company Number: BE-ROCHE-639951

PATIENT
  Sex: Male
  Weight: 52 kg

DRUGS (5)
  1. PEG-INTERFERON ALFA 2A (RO 25-8310) [Suspect]
     Indication: HEPATITIS C
     Route: 058
     Dates: start: 20081208, end: 20090525
  2. RIBAVIRIN [Suspect]
     Indication: HEPATITIS C
     Route: 048
     Dates: start: 20081208, end: 20090525
  3. CILAZAPRIL [Suspect]
     Indication: PAIN
     Route: 048
     Dates: start: 20090605, end: 20090624
  4. PIRITRAMIDE [Suspect]
     Indication: PAIN
     Route: 042
     Dates: start: 20090622, end: 20090624
  5. ACETAMINOPHEN [Concomitant]
     Indication: PAIN
     Route: 042
     Dates: start: 20090609, end: 20090624

REACTIONS (3)
  - KLEBSIELLA BACTERAEMIA [None]
  - METASTASES TO PERITONEUM [None]
  - PERITONEAL DISORDER [None]
